FAERS Safety Report 6376627-7 (Version None)
Quarter: 2009Q3

REPORT INFORMATION
  Report Type: 
  Country: None (occurrence: None)
  Receive Date: 20090925
  Receipt Date: 20090918
  Transmission Date: 20100115
  Serious: Yes (Hospitalization)
  Sender: FDA-Public Use
  Company Number: FR-ROCHE-656063

PATIENT
  Sex: Male
  Weight: 58.5 kg

DRUGS (2)
  1. INTERFERON ALFA [Suspect]
     Indication: RENAL CELL CARCINOMA
     Route: 042
     Dates: start: 20090605
  2. BEVACIZUMAB [Suspect]
     Indication: RENAL CELL CARCINOMA
     Route: 042
     Dates: start: 20090605

REACTIONS (1)
  - RETINOPATHY [None]
